FAERS Safety Report 16975605 (Version 1)
Quarter: 2019Q4

REPORT INFORMATION
  Report Type: Spontaneous
  Country: US (occurrence: US)
  Receive Date: 20191029
  Receipt Date: 20191029
  Transmission Date: 20200122
  Serious: Yes (Other)
  Sender: FDA-Public Use
  Company Number: None

PATIENT
  Age: 48 Year
  Sex: Female

DRUGS (16)
  1. NARCAN SPR [Concomitant]
  2. POT CHLORIDE CAP 10 MEQ ER [Concomitant]
  3. HUMIRA [Suspect]
     Active Substance: ADALIMUMAB
     Indication: ARTHROPATHY
     Dosage: ?          OTHER FREQUENCY:EVERY WEEK;?
     Route: 058
     Dates: start: 20190216
  4. BOTOX [Suspect]
     Active Substance: ONABOTULINUMTOXINA
     Indication: MIGRAINE
     Dosage: 155 IU INTRAMUSCULAR EVERY 12 WEEKS?
     Route: 030
     Dates: start: 20180205
  5. ZONISAMIDE CAP 50 MG [Concomitant]
  6. FLUCONAZOLE TAB 150 MG [Concomitant]
  7. CYCLOBENZAPRINE TAB 10 MG [Concomitant]
  8. AZITHROMYCIN TAB 500 MG [Concomitant]
  9. HYDROCO/APAP TAB 7.5-325 [Concomitant]
  10. MAGNESIUM-OX TAB 400 MG [Concomitant]
  11. BUT/APAP/CAF TAB [Concomitant]
  12. ZOLPIDEM ER TAB 12.5 MG [Concomitant]
  13. ATORVASTATIN TAB 20 MG [Concomitant]
  14. LEVOTHYROXINE TAB 50 MCG [Concomitant]
  15. CELECOXIB CAP 200 MG [Concomitant]
  16. OXYCODONE/APAP TAB 10-325 MG [Concomitant]

REACTIONS (6)
  - Malaise [None]
  - Surgery [None]
  - Condition aggravated [None]
  - Therapy cessation [None]
  - Fatigue [None]
  - Musculoskeletal stiffness [None]

NARRATIVE: CASE EVENT DATE: 20191021
